FAERS Safety Report 4849566-8 (Version None)
Quarter: 2005Q4

REPORT INFORMATION
  Report Type: 
  Country: None (occurrence: None)
  Receive Date: 20051207
  Receipt Date: 20051121
  Transmission Date: 20060501
  Serious: Yes (Hospitalization, Other)
  Sender: FDA-Public Use
  Company Number: 2005130433

PATIENT
  Age: 77 Year
  Sex: Male
  Weight: 59 kg

DRUGS (11)
  1. UNASYN [Suspect]
     Indication: INFECTION PROPHYLAXIS
     Dosage: 3 GRAM (1.5 GRAM, BID), INTRAVENOUS
     Route: 042
     Dates: start: 20050901, end: 20050902
  2. FAMOTIDINE [Concomitant]
  3. PRINK (ALPROSTADIL) [Concomitant]
  4. VASOLATOR (GLYCERYL TRINITRATE) [Concomitant]
  5. SALIPEX (NICARDIPINE HYDROCHLORIDE) [Concomitant]
  6. PROCYLIN (BERAPROST SODIUM) [Concomitant]
  7. ISOSORBIDE MONONITRATE [Concomitant]
  8. FAMOTIDINE [Concomitant]
  9. DIOVAN [Concomitant]
  10. AMLODIPINE [Concomitant]
  11. ASPIRIN [Concomitant]

REACTIONS (10)
  - ALANINE AMINOTRANSFERASE INCREASED [None]
  - ASPARTATE AMINOTRANSFERASE INCREASED [None]
  - BLOOD LACTATE DEHYDROGENASE INCREASED [None]
  - CHOLESTASIS [None]
  - DISSEMINATED INTRAVASCULAR COAGULATION [None]
  - LIFE SUPPORT [None]
  - LIVER DISORDER [None]
  - LUNG INJURY [None]
  - POST PROCEDURAL COMPLICATION [None]
  - SYSTEMIC INFLAMMATORY RESPONSE SYNDROME [None]
